FAERS Safety Report 19583996 (Version 2)
Quarter: 2021Q3

REPORT INFORMATION
  Report Type: Spontaneous
  Country: EG (occurrence: EG)
  Receive Date: 20210720
  Receipt Date: 20210910
  Transmission Date: 20211014
  Serious: Yes (Death, Hospitalization, Other)
  Sender: FDA-Public Use
  Company Number: EG-BAYER-2021-173430

PATIENT
  Age: 58 Year
  Sex: Male

DRUGS (1)
  1. REGORAFENIB. [Suspect]
     Active Substance: REGORAFENIB
     Indication: HEPATOCELLULAR CARCINOMA
     Dosage: 40 MG, TID

REACTIONS (14)
  - Choledochal cyst [Recovered/Resolved]
  - Hepatic failure [Recovered/Resolved]
  - Necrotic lymphadenopathy [None]
  - Aspartate aminotransferase increased [Recovered/Resolved]
  - Alanine aminotransferase increased [Recovered/Resolved]
  - Hypoglycaemia [Fatal]
  - Cyst [Recovering/Resolving]
  - Off label use [None]
  - Jaundice [Recovered/Resolved]
  - Biliary dilatation [Recovered/Resolved]
  - Duodenal ulcer [Recovered/Resolved]
  - Biliary obstruction [None]
  - Gallbladder enlargement [Recovered/Resolved]
  - Blood bilirubin increased [Recovering/Resolving]
